FAERS Safety Report 14748976 (Version 1)
Quarter: 2018Q2

REPORT INFORMATION
  Report Type: Spontaneous
  Country: US (occurrence: US)
  Receive Date: 20180411
  Receipt Date: 20180411
  Transmission Date: 20180711
  Serious: No
  Sender: FDA-Public Use
  Company Number: US-AMGEN-USASP2017190601

PATIENT
  Age: 77 Year
  Sex: Male

DRUGS (3)
  1. PROLIA [Suspect]
     Active Substance: DENOSUMAB
     Indication: BONE LOSS
     Dosage: 60 MG, Q6MO
     Route: 058
     Dates: start: 20151105
  2. PROLIA [Suspect]
     Active Substance: DENOSUMAB
     Indication: OSTEOPENIA
  3. LUPRON [Concomitant]
     Active Substance: LEUPROLIDE ACETATE
     Dosage: UNK
     Dates: end: 201612

REACTIONS (6)
  - Arthralgia [Unknown]
  - Mobility decreased [Unknown]
  - Off label use [Unknown]
  - Pollakiuria [Unknown]
  - Nerve injury [Unknown]
  - Gait disturbance [Unknown]
